FAERS Safety Report 7534813-4 (Version None)
Quarter: 2011Q2

REPORT INFORMATION
  Report Type: 
  Country: None (occurrence: None)
  Receive Date: 20110609
  Receipt Date: 20080922
  Transmission Date: 20111010
  Serious: Yes (Other)
  Sender: FDA-Public Use
  Company Number: PHHY2008GB14244

PATIENT
  Sex: Male

DRUGS (6)
  1. CLOZAPINE [Suspect]
     Indication: SCHIZOPHRENIA
     Dosage: 300 MG, DAILY
     Route: 048
     Dates: start: 20070424, end: 20080805
  2. AMISULPRIDE [Concomitant]
  3. VENLAFAXINE [Concomitant]
  4. OMEPRAZOLE [Concomitant]
  5. PREGABALIN [Concomitant]
  6. LEVOMEPROMAZINE [Concomitant]

REACTIONS (12)
  - HEPATIC STEATOSIS [None]
  - HYPERLIPIDAEMIA [None]
  - ASPARTATE AMINOTRANSFERASE ABNORMAL [None]
  - GAMMA-GLUTAMYLTRANSFERASE INCREASED [None]
  - DIABETES MELLITUS [None]
  - VIRAL INFECTION [None]
  - HEPATITIS [None]
  - NAUSEA [None]
  - LIVER FUNCTION TEST ABNORMAL [None]
  - ALANINE AMINOTRANSFERASE INCREASED [None]
  - BLOOD ALKALINE PHOSPHATASE INCREASED [None]
  - WEIGHT INCREASED [None]
